FAERS Safety Report 6461934-X (Version None)
Quarter: 2009Q4

REPORT INFORMATION
  Report Type: 
  Country: None (occurrence: None)
  Receive Date: 20091130
  Receipt Date: 20091119
  Transmission Date: 20100525
  Serious: Yes (Other)
  Sender: FDA-Public Use
  Company Number: JP-ASTRAZENECA-2009SE02871

PATIENT
  Age: 16 Year
  Sex: Female

DRUGS (3)
  1. QUETIAPINE FUMARATE [Suspect]
     Route: 048
     Dates: start: 20080923, end: 20080924
  2. QUETIAPINE FUMARATE [Suspect]
     Route: 048
     Dates: start: 20081015, end: 20081016
  3. LITHIUM CARBONATE [Concomitant]
     Route: 048

REACTIONS (1)
  - VENTRICULAR EXTRASYSTOLES [None]
